FAERS Safety Report 8256269-9 (Version None)
Quarter: 2012Q2

REPORT INFORMATION
  Report Type: 
  Country: None (occurrence: None)
  Receive Date: 20120403
  Receipt Date: 20120326
  Transmission Date: 20120825
  Serious: Yes (Other)
  Sender: FDA-Public Use
  Company Number: US-TEVA-330608USA

PATIENT
  Age: 7 Year
  Sex: Male

DRUGS (2)
  1. TACROLIMUS [Suspect]
     Indication: IMMUNOSUPPRESSION
     Dosage: STARTED AT 0.3 MG/KG/DAY THEN ADJUSTED TO ACHIEVE TARGET TROUGH CONCENTRATIONS
     Route: 065
  2. MYCOPHENOLIC ACID [Suspect]
     Indication: IMMUNOSUPPRESSION
     Dosage: 300-500 MG/M2/DAY
     Route: 065

REACTIONS (2)
  - BK VIRUS INFECTION [None]
  - AZOTAEMIA [None]
